FAERS Safety Report 4678747-1 (Version None)
Quarter: 2005Q2

REPORT INFORMATION
  Report Type: 
  Country: None (occurrence: None)
  Receive Date: 20050531
  Receipt Date: 20050525
  Transmission Date: 20051028
  Serious: Yes (Hospitalization, Other)
  Sender: FDA-Public Use
  Company Number: HQWYE371027APR05

PATIENT
  Age: 40 Year
  Sex: Male
  Weight: 63.56 kg

DRUGS (7)
  1. RAPAMUNE [Suspect]
     Indication: PROPHYLAXIS AGAINST TRANSPLANT REJECTION
     Dosage: SEE IMAGE
     Route: 048
     Dates: start: 20050418, end: 20050401
  2. RAPAMUNE [Suspect]
     Indication: PROPHYLAXIS AGAINST TRANSPLANT REJECTION
     Dosage: SEE IMAGE
     Route: 048
     Dates: start: 20050401
  3. CELLCEPT [Suspect]
     Indication: IMMUNOSUPPRESSANT DRUG THERAPY
     Dosage: 1000 MG 2X PER 1 DAY
  4. PREDNISONE [Suspect]
     Indication: IMMUNOSUPPRESSANT DRUG THERAPY
     Dosage: 30 MG 1X PER DAY, ORAL
     Route: 048
  5. ZENAPAX [Suspect]
     Dates: start: 20050417
  6. INSULIN [Concomitant]
  7. SEPTRA DS [Concomitant]

REACTIONS (9)
  - ACUTE PULMONARY OEDEMA [None]
  - ANAESTHETIC COMPLICATION CARDIAC [None]
  - BLOOD CREATINE PHOSPHOKINASE INCREASED [None]
  - EJECTION FRACTION DECREASED [None]
  - INTRACARDIAC THROMBUS [None]
  - MYOCARDIAL INFARCTION [None]
  - OXYGEN SATURATION DECREASED [None]
  - POST PROCEDURAL COMPLICATION [None]
  - VENTRICULAR DYSFUNCTION [None]
